FAERS Safety Report 23074438 (Version 1)
Quarter: 2023Q4

REPORT INFORMATION
  Report Type: Other
  Country: None (occurrence: US)
  Receive Date: 20231017
  Receipt Date: 20231017
  Transmission Date: 20240110
  Serious: Yes (Life-Threatening)
  Sender: FDA-Public Use
  Company Number: US-B.Braun Medical Inc.-2147181

PATIENT
  Age: 44 Year
  Sex: Male

DRUGS (8)
  1. CEFEPIME HYDROCHLORIDE AND DEXTROSE [Suspect]
     Active Substance: CEFEPIME HYDROCHLORIDE
     Indication: Klebsiella infection
  2. MEROPENEM [Suspect]
     Active Substance: MEROPENEM
  3. VANCOMYCIN [Suspect]
     Active Substance: VANCOMYCIN
  4. ANIDULAFUNGIN [Suspect]
     Active Substance: ANIDULAFUNGIN
  5. PIPERACILLIN AND TAZOBACTAM [Suspect]
     Active Substance: PIPERACILLIN SODIUM\TAZOBACTAM SODIUM
  6. CLINDAMYCIN [Suspect]
     Active Substance: CLINDAMYCIN
  7. METHYLPREDNISOLONE [Concomitant]
     Active Substance: METHYLPREDNISOLONE
  8. ETANERCEPT [Concomitant]
     Active Substance: ETANERCEPT

REACTIONS (3)
  - Stevens-Johnson syndrome [None]
  - Toxic epidermal necrolysis [None]
  - Drug ineffective [None]
